FAERS Safety Report 8645246 (Version 2)
Quarter: 2012Q4

REPORT INFORMATION
  Report Type: 
  Country: US (occurrence: US)
  Receive Date: 20120702
  Receipt Date: 20120830
  Transmission Date: 20130627
  Serious: Yes (Death)
  Sender: FDA-Public Use
  Company Number: US-ELI_LILLY_AND_COMPANY-US201206008701

PATIENT
  Sex: Female
  Weight: 43.99 kg

DRUGS (1)
  1. FORTEO [Suspect]
     Dosage: 20 ug, qd
     Route: 058
     Dates: start: 20110409, end: 20120604

REACTIONS (3)
  - Death [Fatal]
  - Tinnitus [Recovering/Resolving]
  - Hallucination, auditory [Recovering/Resolving]
